FAERS Safety Report 22358126 (Version 1)
Quarter: 2023Q2

REPORT INFORMATION
  Report Type: Spontaneous
  Country: US (occurrence: US)
  Receive Date: 20230524
  Receipt Date: 20230524
  Transmission Date: 20230722
  Serious: Yes (Hospitalization, Other)
  Sender: FDA-Public Use
  Company Number: US-BRISTOL-MYERS SQUIBB COMPANY-2023-069511

PATIENT
  Age: 79 Year
  Sex: Female

DRUGS (1)
  1. POMALYST [Suspect]
     Active Substance: POMALIDOMIDE
     Indication: Plasma cell myeloma
     Route: 048
     Dates: start: 20230119

REACTIONS (6)
  - Depression [Unknown]
  - Pulmonary hypertension [Unknown]
  - Pain in extremity [Unknown]
  - Memory impairment [Unknown]
  - Thrombosis [Unknown]
  - Myocardial infarction [Unknown]
